FAERS Safety Report 22303417 (Version 1)
Quarter: 2023Q2

REPORT INFORMATION
  Report Type: Spontaneous
  Country: US (occurrence: US)
  Receive Date: 20230510
  Receipt Date: 20230510
  Transmission Date: 20230722
  Serious: Yes (Other)
  Sender: FDA-Public Use
  Company Number: US-INTRA-CELLULAR THERAPIES, INC.-2023ICT00482

PATIENT
  Age: 0 Year
  Sex: Male

DRUGS (6)
  1. CAPLYTA [Suspect]
     Active Substance: LUMATEPERONE
     Indication: Bipolar disorder
     Dosage: 42 MG, 1X/DAY, 1 HOUR BEFORE BEDTIME
     Route: 048
     Dates: start: 20230302, end: 20230304
  2. CLONIDINE [Concomitant]
     Active Substance: CLONIDINE
  3. EFFEXOR [Concomitant]
     Active Substance: VENLAFAXINE HYDROCHLORIDE
  4. MARIJUANA WITH THC [Concomitant]
  5. ENERGY DRINKS [Concomitant]
  6. CANNABIS SATIVA FLOWERING TOP [Concomitant]
     Active Substance: CANNABIS SATIVA FLOWERING TOP

REACTIONS (16)
  - Suicidal ideation [Recovered/Resolved]
  - Negative symptoms in schizophrenia [Not Recovered/Not Resolved]
  - Anxiety [Not Recovered/Not Resolved]
  - Obsessive-compulsive disorder [Not Recovered/Not Resolved]
  - Dissociative disorder [Recovered/Resolved]
  - Influenza like illness [Recovered/Resolved]
  - Feeling abnormal [Recovered/Resolved]
  - Muscular weakness [Recovered/Resolved]
  - Disturbance in attention [Not Recovered/Not Resolved]
  - Delusion [Recovered/Resolved]
  - Performance status decreased [Recovered/Resolved]
  - Fatigue [Recovered/Resolved]
  - Brain fog [Not Recovered/Not Resolved]
  - Obsessive thoughts [Recovered/Resolved]
  - Somnolence [Recovered/Resolved]
  - Cognitive disorder [Unknown]

NARRATIVE: CASE EVENT DATE: 19530303
